FAERS Safety Report 14763078 (Version 1)
Quarter: 2018Q2

REPORT INFORMATION
  Report Type: Spontaneous
  Country: CL (occurrence: CL)
  Receive Date: 20180416
  Receipt Date: 20180416
  Transmission Date: 20180711
  Serious: Yes (Hospitalization)
  Sender: FDA-Public Use
  Company Number: PHHY2018CL061256

PATIENT
  Age: 54 Year
  Sex: Female

DRUGS (4)
  1. PREDNISONE. [Concomitant]
     Active Substance: PREDNISONE
     Indication: ENTEROCOLITIS BACTERIAL
     Dosage: 1 MG/KG, QD
     Route: 048
  2. CIPROFLOXACIN. [Concomitant]
     Active Substance: CIPROFLOXACIN
     Indication: ENTEROCOLITIS BACTERIAL
     Dosage: 200 MG, Q12H
     Route: 065
  3. METRONIDAZOL [Concomitant]
     Active Substance: METRONIDAZOLE
     Indication: ENTEROCOLITIS BACTERIAL
     Dosage: 500 MG, Q8H
     Route: 042
  4. PIPERACILLIN AND TAZOBACTAM [Suspect]
     Active Substance: PIPERACILLIN SODIUM\TAZOBACTAM SODIUM
     Indication: ENTEROCOLITIS BACTERIAL
     Dosage: 0.5 G, Q8H
     Route: 065

REACTIONS (2)
  - Enterocolitis bacterial [Unknown]
  - Serositis [Recovered/Resolved]
